FAERS Safety Report 4947900-1 (Version None)
Quarter: 2006Q1

REPORT INFORMATION
  Report Type: 
  Country: None (occurrence: None)
  Receive Date: 20060310
  Receipt Date: 20060223
  Transmission Date: 20060701
  Serious: Yes (Hospitalization)
  Sender: FDA-Public Use
  Company Number: US016905

PATIENT
  Age: 33 Year
  Sex: Male

DRUGS (6)
  1. TRISENOX [Suspect]
     Indication: ACUTE PROMYELOCYTIC LEUKAEMIA
     Dosage: 10.8 MG QD INTRAVENOUS DRIP
     Route: 041
     Dates: start: 20050917, end: 20051115
  2. HEPARIN [Concomitant]
  3. FAMOTIDINE [Concomitant]
  4. FLUCONAZOLE [Concomitant]
  5. SULFAMETHOXAZOLE + TRIMETHOPRIM [Concomitant]
  6. ACYCLOVIR [Concomitant]

REACTIONS (2)
  - PLATELET COUNT DECREASED [None]
  - WHITE BLOOD CELL COUNT DECREASED [None]
